FAERS Safety Report 6449644-6 (Version None)
Quarter: 2009Q4

REPORT INFORMATION
  Report Type: 
  Country: None (occurrence: None)
  Receive Date: 20091120
  Receipt Date: 20090422
  Transmission Date: 20100525
  Serious: Yes (Other)
  Sender: FDA-Public Use
  Company Number: US-AMGEN-QUU327596

PATIENT
  Sex: Male
  Weight: 63.1 kg

DRUGS (1)
  1. ENBREL [Suspect]
     Indication: RHEUMATOID ARTHRITIS
     Route: 058
     Dates: start: 20030101, end: 20080804

REACTIONS (3)
  - HODGKIN'S DISEASE [None]
  - INFLUENZA LIKE ILLNESS [None]
  - RHEUMATOID ARTHRITIS [None]
